FAERS Safety Report 9451692 (Version 1)
Quarter: 2013Q3

REPORT INFORMATION
  Report Type: Spontaneous
  Country: BR (occurrence: BR)
  Receive Date: 20130812
  Receipt Date: 20130812
  Transmission Date: 20140515
  Serious: Yes (Other)
  Sender: FDA-Public Use
  Company Number: BR-BIOGENIDEC-2013BI072628

PATIENT
  Sex: Female

DRUGS (4)
  1. AVONEX [Suspect]
     Indication: MULTIPLE SCLEROSIS
     Route: 030
     Dates: start: 20111217, end: 20121031
  2. AVONEX [Suspect]
     Indication: MULTIPLE SCLEROSIS
     Route: 030
     Dates: start: 20121107, end: 201305
  3. PAROXETINA [Concomitant]
     Indication: DEPRESSION
  4. RIVOTRIL [Concomitant]
     Indication: SLEEP DISORDER

REACTIONS (2)
  - Drug-induced liver injury [Recovered/Resolved]
  - Dengue fever [Recovered/Resolved]
